FAERS Safety Report 5157890-7 (Version None)
Quarter: 2006Q4

REPORT INFORMATION
  Report Type: 
  Country: None (occurrence: None)
  Receive Date: 20061120
  Receipt Date: 20061120
  Transmission Date: 20070319
  Serious: Yes (Hospitalization)
  Sender: FDA-Public Use
  Company Number: None

PATIENT
  Age: 54 Year
  Sex: Female

DRUGS (1)
  1. FERRLECIT [Suspect]

REACTIONS (3)
  - HYPERHIDROSIS [None]
  - SKIN TIGHTNESS [None]
  - URTICARIA [None]
